FAERS Safety Report 6089455-7 (Version None)
Quarter: 2009Q1

REPORT INFORMATION
  Report Type: 
  Country: None (occurrence: None)
  Receive Date: 20090219
  Receipt Date: 20090204
  Transmission Date: 20090719
  Serious: Yes (Hospitalization)
  Sender: FDA-Public Use
  Company Number: 8042931

PATIENT
  Age: 34 Year
  Sex: Male

DRUGS (15)
  1. KEPPRA [Suspect]
     Dosage: 1000 MG /D PO
     Route: 048
     Dates: start: 20081113, end: 20081217
  2. KEPPRA [Suspect]
     Dosage: 500 MG /D PO
     Route: 048
     Dates: start: 20081218, end: 20081221
  3. DEROXAT [Suspect]
     Dosage: 1 DF /D PO
     Route: 048
     Dates: start: 20081113, end: 20081218
  4. TARGOCID [Suspect]
     Dosage: 600 MG /D IV
     Route: 042
     Dates: start: 20081126, end: 20081218
  5. OGASTRO [Concomitant]
  6. OGASTRO [Concomitant]
  7. STILNOX /00914901/ [Concomitant]
  8. RIFADIN [Concomitant]
  9. LIORESAL [Concomitant]
  10. DOLIPRANE [Concomitant]
  11. DIFFU K [Concomitant]
  12. MAG 2 [Concomitant]
  13. SCOPODERM /00008701/ [Concomitant]
  14. PHOSPHORE /00859901/ [Concomitant]
  15. UNSPECIFIED ANTIBIOTIC [Concomitant]

REACTIONS (3)
  - NEUTROPENIA [None]
  - SUBDURAL EMPYEMA [None]
  - WHITE BLOOD CELL COUNT DECREASED [None]
